FAERS Safety Report 5731056-1 (Version None)
Quarter: 2008Q2

REPORT INFORMATION
  Report Type: 
  Country: None (occurrence: None)
  Receive Date: 20080507
  Receipt Date: 20080428
  Transmission Date: 20081010
  Serious: Yes (Hospitalization)
  Sender: FDA-Public Use
  Company Number: CH-MERCK-0804CHE00016

PATIENT
  Age: 70 Year
  Sex: Female
  Weight: 64 kg

DRUGS (14)
  1. FOSAMAX [Suspect]
     Indication: OSTEOPOROSIS
     Route: 048
     Dates: start: 19950101, end: 20060101
  2. IBANDRONATE SODIUM [Suspect]
     Indication: OSTEOPOROSIS
     Route: 048
     Dates: start: 20060101, end: 20080101
  3. ATENOLOL [Concomitant]
     Route: 048
  4. FLUOXETINE [Concomitant]
     Route: 048
  5. AMITRIPTYLINE HYDROCHLORIDE [Concomitant]
     Route: 048
  6. ZOLPIDEM TARTRATE [Concomitant]
     Route: 048
  7. TIBOLONE [Concomitant]
     Route: 048
     Dates: end: 20080126
  8. LORAZEPAM [Concomitant]
     Route: 048
  9. RABEPRAZOLE SODIUM [Concomitant]
     Route: 048
  10. MONTELUKAST SODIUM [Concomitant]
     Route: 048
  11. FLUTICASONE PROPIONATE AND SALMETEROL XINAFOATE [Concomitant]
  12. BUDESONIDE [Concomitant]
  13. NORFLOXACIN [Concomitant]
     Route: 048
     Dates: end: 20080129
  14. CALCIUM CARBONATE [Concomitant]
     Route: 048

REACTIONS (1)
  - FEMUR FRACTURE [None]
